FAERS Safety Report 8048354-1 (Version None)
Quarter: 2012Q1

REPORT INFORMATION
  Report Type: 
  Country: None (occurrence: None)
  Receive Date: 20120117
  Receipt Date: 20120113
  Transmission Date: 20120608
  Serious: No
  Sender: FDA-Public Use
  Company Number: US-PFIZER INC-2012010949

PATIENT
  Sex: Female
  Weight: 68.03 kg

DRUGS (4)
  1. LIPITOR [Suspect]
     Indication: BLOOD CHOLESTEROL INCREASED
     Dosage: 10MG ONCE A DAY
     Route: 048
     Dates: end: 20120105
  2. LISINOPRIL [Concomitant]
     Indication: HYPERTENSION
     Dosage: UNK
  3. AVAPRO [Concomitant]
     Indication: HYPERTENSION
     Dosage: UNK
  4. ATORVASTATIN [Suspect]
     Indication: BLOOD CHOLESTEROL INCREASED
     Dosage: 10MG ONCE A DAY
     Route: 048
     Dates: start: 20120106, end: 20120106

REACTIONS (4)
  - MALAISE [None]
  - ASTHENIA [None]
  - DIZZINESS [None]
  - TREMOR [None]
